FAERS Safety Report 9986532 (Version 1)
Quarter: 2014Q1

REPORT INFORMATION
  Report Type: Spontaneous
  Country: US (occurrence: US)
  Receive Date: 20140307
  Receipt Date: 20140307
  Transmission Date: 20141002
  Serious: Yes (Death)
  Sender: FDA-Public Use
  Company Number: US-ABBVIE-14P-163-1207583-00

PATIENT
  Age: 78 Year
  Sex: Male
  Weight: 53.57 kg

DRUGS (1)
  1. LUPRON DEPOT [Suspect]
     Indication: PROSTATE CANCER
     Dates: start: 2007, end: 2013

REACTIONS (2)
  - Prostate cancer metastatic [Fatal]
  - Urinary tract infection [Unknown]
